FAERS Safety Report 6250255-6 (Version None)
Quarter: 2009Q2

REPORT INFORMATION
  Report Type: 
  Country: None (occurrence: None)
  Receive Date: 20090626
  Receipt Date: 20090626
  Transmission Date: 20091009
  Serious: Yes (Other)
  Sender: FDA-Public Use
  Company Number: None

PATIENT
  Sex: Female
  Weight: 80.2867 kg

DRUGS (2)
  1. TOPAMAX [Suspect]
     Indication: MIGRAINE
     Dosage: 50 MG BID ORAL
     Route: 048
     Dates: start: 20090413
  2. TOPAMAX [Suspect]
     Indication: PROPHYLAXIS
     Dosage: 50 MG BID ORAL
     Route: 048
     Dates: start: 20090413

REACTIONS (3)
  - CONDITION AGGRAVATED [None]
  - HEADACHE [None]
  - PRODUCT SUBSTITUTION ISSUE [None]
